FAERS Safety Report 5115219-4 (Version None)
Quarter: 2006Q3

REPORT INFORMATION
  Report Type: 
  Country: None (occurrence: None)
  Receive Date: 20060926
  Receipt Date: 20060914
  Transmission Date: 20061208
  Serious: Yes (Hospitalization, Other)
  Sender: FDA-Public Use
  Company Number: PHEH2006US11767

PATIENT

DRUGS (2)
  1. SANDOSTATIN [Suspect]
     Indication: DIARRHOEA
     Dosage: 200 MCG Q8HRS
  2. CHEMOTHERAPEUTICS,OTHER [Concomitant]

REACTIONS (2)
  - CREATININE RENAL CLEARANCE DECREASED [None]
  - MALIGNANT MELANOMA [None]
